FAERS Safety Report 8465606-1 (Version None)
Quarter: 2012Q2

REPORT INFORMATION
  Report Type: 
  Country: None (occurrence: None)
  Receive Date: 20120323
  Receipt Date: 20111017
  Transmission Date: 20120825
  Serious: Yes (Hospitalization)
  Sender: FDA-Public Use
  Company Number: 163-21880-11101843

PATIENT
  Age: 53 Year
  Sex: Female

DRUGS (3)
  1. REVLIMID [Suspect]
     Indication: LYMPHOMA
     Dosage: 10 MG, 1 IN 1 D, PO 25 MG, 1 IN 1 D, PO 10-25MG, PO
     Route: 048
     Dates: start: 20110501
  2. REVLIMID [Suspect]
     Indication: LYMPHOMA
     Dosage: 10 MG, 1 IN 1 D, PO 25 MG, 1 IN 1 D, PO 10-25MG, PO
     Route: 048
     Dates: start: 20110701
  3. REVLIMID [Suspect]
     Indication: LYMPHOMA
     Dosage: 10 MG, 1 IN 1 D, PO 25 MG, 1 IN 1 D, PO 10-25MG, PO
     Route: 048
     Dates: start: 20110501

REACTIONS (3)
  - INFECTION [None]
  - SEPSIS [None]
  - PYREXIA [None]
